FAERS Safety Report 19394295 (Version 1)
Quarter: 2021Q2

REPORT INFORMATION
  Report Type: Spontaneous
  Country: US (occurrence: US)
  Receive Date: 20210608
  Receipt Date: 20210608
  Transmission Date: 20210717
  Serious: Yes (Hospitalization)
  Sender: FDA-Public Use
  Company Number: None

PATIENT
  Age: 63 Year
  Sex: Male

DRUGS (3)
  1. MAYZENT [Suspect]
     Active Substance: SIPONIMOD
     Indication: MULTIPLE SCLEROSIS
     Route: 048
     Dates: start: 20200801
  2. MAYZENT [Suspect]
     Active Substance: SIPONIMOD
     Indication: TESTICULAR FAILURE
     Route: 048
     Dates: start: 20200801
  3. MAYZENT [Concomitant]
     Active Substance: SIPONIMOD
     Dates: start: 20200801

REACTIONS (2)
  - Incoherent [None]
  - Seizure [None]

NARRATIVE: CASE EVENT DATE: 20210607
